FAERS Safety Report 8538074-9 (Version None)
Quarter: 2012Q3

REPORT INFORMATION
  Report Type: 
  Country: None (occurrence: None)
  Receive Date: 20120725
  Receipt Date: 20120713
  Transmission Date: 20120928
  Serious: Yes (Other)
  Sender: FDA-Public Use
  Company Number: US-PFIZER INC-2011283453

PATIENT
  Sex: Male
  Weight: 72 kg

DRUGS (2)
  1. FRAGMIN [Concomitant]
     Indication: DEEP VEIN THROMBOSIS
     Dosage: 10000 IU, 1X/DAY
     Route: 058
     Dates: start: 20110401
  2. CRIZOTINIB [Suspect]
     Indication: NON-SMALL CELL LUNG CANCER
     Dosage: 250 MG, 2X/DAY
     Route: 048
     Dates: start: 20110623, end: 20111116

REACTIONS (1)
  - HYPOPHOSPHATAEMIA [None]
